FAERS Safety Report 18603854 (Version 3)
Quarter: 2021Q1

REPORT INFORMATION
  Report Type: Spontaneous
  Country: US (occurrence: US)
  Receive Date: 20201211
  Receipt Date: 20210306
  Transmission Date: 20210419
  Serious: Yes (Hospitalization)
  Sender: FDA-Public Use
  Company Number: US-ROCHE-2725246

PATIENT
  Sex: Female

DRUGS (3)
  1. CAPECITABINE. [Suspect]
     Active Substance: CAPECITABINE
     Indication: PRODUCT USED FOR UNKNOWN INDICATION
     Dosage: REDUCED DOSE
     Route: 048
  2. TUKYSA [Suspect]
     Active Substance: TUCATINIB
     Indication: METASTASES TO BONE
  3. TUKYSA [Suspect]
     Active Substance: TUCATINIB
     Indication: BREAST CANCER FEMALE
     Route: 065

REACTIONS (8)
  - Biliary tract disorder [Unknown]
  - Malaise [Unknown]
  - Pulmonary thrombosis [Unknown]
  - Nausea [Unknown]
  - Neuropathy peripheral [Unknown]
  - Sleep disorder [Unknown]
  - Thrombosis [Unknown]
  - Vomiting [Unknown]
